FAERS Safety Report 6965495-8 (Version None)
Quarter: 2010Q3

REPORT INFORMATION
  Report Type: 
  Country: None (occurrence: None)
  Receive Date: 20100903
  Receipt Date: 20100825
  Transmission Date: 20110219
  Serious: Yes (Hospitalization)
  Sender: FDA-Public Use
  Company Number: DE-JNJFOC-20090306520

PATIENT
  Age: 76 Year
  Sex: Female
  Weight: 50 kg

DRUGS (3)
  1. DOLORMIN EXTRA 400 MG [Suspect]
     Indication: BONE PAIN
     Dosage: 400MG 2-3 TIMES A DAY
     Route: 048
  2. DOLORMIN EXTRA 400 MG [Suspect]
     Route: 048
  3. CALCILAC [Concomitant]
     Indication: OSTEOPOROSIS

REACTIONS (1)
  - GASTRIC ULCER HAEMORRHAGE [None]
